FAERS Safety Report 5070302-7 (Version None)
Quarter: 2006Q3

REPORT INFORMATION
  Report Type: 
  Country: None (occurrence: None)
  Receive Date: 20060802
  Receipt Date: 20060721
  Transmission Date: 20061208
  Serious: Yes (Other)
  Sender: FDA-Public Use
  Company Number: HQWYE217908MAR06

PATIENT
  Age: 43 Year
  Sex: Male

DRUGS (4)
  1. RAPAMUNE [Suspect]
     Indication: PROPHYLAXIS AGAINST TRANSPLANT REJECTION
     Dates: start: 20050307, end: 20050517
  2. ZENAPAX [Concomitant]
  3. MYCOPHENOLATE MOFETIL [Concomitant]
  4. CORTICOSTEROIDS [Concomitant]

REACTIONS (3)
  - ABSCESS [None]
  - GANGRENE [None]
  - SKIN ULCER [None]
